FAERS Safety Report 9095678 (Version 1)
Quarter: 2013Q1

REPORT INFORMATION
  Report Type: Spontaneous
  Country: DK (occurrence: None)
  Receive Date: 20130123
  Receipt Date: 20130123
  Transmission Date: 20140127
  Serious: Yes (Hospitalization)
  Sender: FDA-Public Use
  Company Number: 2013MA000526

PATIENT
  Sex: Female

DRUGS (2)
  1. FEVERALL [Suspect]
  2. EFFERALGAN [Suspect]
     Indication: PYREXIA

REACTIONS (2)
  - Convulsion [None]
  - Choking [None]
